FAERS Safety Report 7829426-0 (Version None)
Quarter: 2011Q4

REPORT INFORMATION
  Report Type: 
  Country: None (occurrence: None)
  Receive Date: 20111020
  Receipt Date: 20111013
  Transmission Date: 20120403
  Serious: Yes (Hospitalization)
  Sender: FDA-Public Use
  Company Number: US-SANOFI-AVENTIS-2011SA068020

PATIENT
  Age: 78 Year
  Sex: Male

DRUGS (2)
  1. LANTUS [Suspect]
     Dosage: DOSE:52 UNIT(S)
     Route: 058
     Dates: start: 20060101
  2. SOLOSTAR [Suspect]
     Dates: start: 20060101

REACTIONS (1)
  - CARDIAC OPERATION [None]
